FAERS Safety Report 20161401 (Version 1)
Quarter: 2021Q4

REPORT INFORMATION
  Report Type: Spontaneous
  Country: US (occurrence: None)
  Receive Date: 20211207
  Receipt Date: 20211207
  Transmission Date: 20220303
  Serious: No
  Sender: FDA-Public Use
  Company Number: None

PATIENT
  Age: 72 Year
  Sex: Female
  Weight: 52.87 kg

DRUGS (2)
  1. PEGASYS [Suspect]
     Active Substance: PEGINTERFERON ALFA-2A
     Indication: Primary myelofibrosis
     Dosage: OTHER FREQUENCY : ONCE A WEEK.;?
     Route: 058
     Dates: start: 20210804
  2. ASPIRIN [Concomitant]
     Active Substance: ASPIRIN

REACTIONS (2)
  - Extra dose administered [None]
  - Accidental overdose [None]

NARRATIVE: CASE EVENT DATE: 20211207
